FAERS Safety Report 8980685 (Version 1)
Quarter: 2012Q4

REPORT INFORMATION
  Report Type: 
  Country: US (occurrence: US)
  Receive Date: 20121221
  Receipt Date: 20121221
  Transmission Date: 20130627
  Serious: No
  Sender: FDA-Public Use
  Company Number: US-PFIZER INC-2012324797

PATIENT
  Age: 36 Year
  Sex: Female
  Weight: 54.42 kg

DRUGS (2)
  1. ALPRAZOLAM [Suspect]
     Indication: ANXIETY
     Dosage: 1mg three times a day as needed
     Dates: start: 2009, end: 20121218
  2. FLUOXETINE [Concomitant]
     Indication: DEPRESSION
     Dosage: UNK, 3x/day

REACTIONS (3)
  - Product quality issue [Recovering/Resolving]
  - Abdominal pain [Recovering/Resolving]
  - Diarrhoea [Recovering/Resolving]
